FAERS Safety Report 14786483 (Version 2)
Quarter: 2018Q2

REPORT INFORMATION
  Report Type: Spontaneous
  Country: JP (occurrence: JP)
  Receive Date: 20180420
  Receipt Date: 20180608
  Transmission Date: 20180711
  Serious: Yes (Death, Hospitalization, Other)
  Sender: FDA-Public Use
  Company Number: JP-PFIZER INC-2018157662

PATIENT
  Age: 76 Year
  Sex: Female
  Weight: 34 kg

DRUGS (9)
  1. SYMMETREL [Concomitant]
     Active Substance: AMANTADINE HYDROCHLORIDE
     Dosage: 100 MG, 1X/DAY
  2. THYRADIN S [Concomitant]
     Active Substance: LEVOTHYROXINE SODIUM
     Dosage: 25 UG, 1X/DAY
  3. RHEUMATREX [Suspect]
     Active Substance: METHOTREXATE SODIUM
     Indication: RHEUMATOID ARTHRITIS
     Dosage: 6 MG, WEEKLY
     Route: 048
     Dates: start: 20160404, end: 201803
  4. RIMATIL [Concomitant]
     Active Substance: BUCILLAMINE
     Dosage: 100 MG, 2X/DAY
  5. AZULFIDINE EN-TABS [Suspect]
     Active Substance: SULFASALAZINE
     Indication: RHEUMATOID ARTHRITIS
     Dosage: 500 MG, 1X/DAY
     Route: 048
     Dates: start: 20180201, end: 20180315
  6. FOLIAMIN [Concomitant]
     Active Substance: FOLIC ACID
     Dosage: 10 MG, WEEKLY
  7. MENESIT [Concomitant]
     Active Substance: CARBIDOPA\LEVODOPA
     Dosage: 50 MG, 4X/DAY
  8. TERNELIN [Concomitant]
     Active Substance: TIZANIDINE
     Dosage: 4 MG, DAILY
  9. REQUIP [Concomitant]
     Active Substance: ROPINIROLE HYDROCHLORIDE
     Dosage: 6 MG, 1X/DAY

REACTIONS (4)
  - Pancytopenia [Fatal]
  - Pneumonia [Unknown]
  - Respiratory failure [Unknown]
  - Sepsis [Unknown]

NARRATIVE: CASE EVENT DATE: 20180315
